FAERS Safety Report 4677783-9 (Version None)
Quarter: 2005Q2

REPORT INFORMATION
  Report Type: 
  Country: None (occurrence: None)
  Receive Date: 20050531
  Receipt Date: 20050517
  Transmission Date: 20051028
  Serious: Yes (Death)
  Sender: FDA-Public Use
  Company Number: JP-JNJFOC-20050505308

PATIENT
  Sex: Female

DRUGS (13)
  1. FENTANYL [Suspect]
     Route: 062
     Dates: start: 20050419, end: 20050428
  2. FENTANYL [Suspect]
     Indication: CANCER PAIN
     Route: 062
     Dates: start: 20050419, end: 20050428
  3. DUROTEP [Suspect]
     Indication: CANCER PAIN
     Route: 062
     Dates: start: 20050428, end: 20050517
  4. TRIAZOLAM [Concomitant]
     Indication: INSOMNIA
     Route: 049
     Dates: start: 20031219, end: 20050517
  5. PRANOPROFEN [Concomitant]
     Indication: APHAKIA
     Route: 065
     Dates: start: 20040126, end: 20050517
  6. MECOBALAMIN [Concomitant]
     Indication: APHAKIA
     Route: 049
     Dates: start: 20040402, end: 20050517
  7. FUROSEMIDE [Concomitant]
     Route: 049
     Dates: start: 20040322, end: 20050517
  8. FUROSEMIDE [Concomitant]
     Indication: OEDEMA
     Route: 049
     Dates: start: 20040322, end: 20050517
  9. L-ASPARTATE [Concomitant]
     Indication: OEDEMA
     Route: 049
     Dates: start: 20050322, end: 20050517
  10. AZULENE SULFONATE SODIUM [Concomitant]
     Indication: GASTRITIS
     Route: 049
     Dates: start: 20050407, end: 20050517
  11. MAGNESIUM OXIDE [Concomitant]
     Indication: CONSTIPATION
     Route: 049
     Dates: start: 20050415, end: 20050517
  12. BECLOMETHASONE DIPROPIONATE [Concomitant]
     Indication: OEDEMA
     Route: 049
     Dates: start: 20050425, end: 20050517
  13. SODIUM PICOSULFATE [Concomitant]
     Indication: CONSTIPATION
     Route: 049
     Dates: start: 20050427, end: 20050427

REACTIONS (1)
  - COLON CANCER [None]
